FAERS Safety Report 7041818-9 (Version None)
Quarter: 2010Q4

REPORT INFORMATION
  Report Type: 
  Country: None (occurrence: None)
  Receive Date: 20101013
  Receipt Date: 20101006
  Transmission Date: 20110411
  Serious: Yes (Other)
  Sender: FDA-Public Use
  Company Number: PHFR2010GB04559

PATIENT
  Age: 65 Year
  Sex: Male

DRUGS (9)
  1. TERBINAFINE HCL [Suspect]
  2. HUMALOG [Interacting]
  3. EXENATIDE [Interacting]
  4. BENDROFLUMETHIAZIDE [Concomitant]
  5. CETIRIZINE HCL [Concomitant]
  6. DILZEM ^ELAN^ [Concomitant]
  7. PRAVASTATIN [Concomitant]
  8. VALSARTAN [Concomitant]
  9. METFORMIN [Concomitant]

REACTIONS (2)
  - DRUG INTERACTION [None]
  - HYPOGLYCAEMIA [None]
